FAERS Safety Report 20333908 (Version 2)
Quarter: 2022Q1

REPORT INFORMATION
  Report Type: Spontaneous
  Country: IN (occurrence: IN)
  Receive Date: 20220113
  Receipt Date: 20220124
  Transmission Date: 20220423
  Serious: Yes (Death)
  Sender: FDA-Public Use
  Company Number: IN-PFIZER INC-2019141296

PATIENT
  Age: 42 Year
  Sex: Female
  Weight: 70 kg

DRUGS (5)
  1. SUTENT [Suspect]
     Active Substance: SUNITINIB MALATE
     Indication: Gastrointestinal stromal tumour
     Dosage: 50 MG, CYCLIC (ONCE DAILY 2 WEEK ON, 1 WEEK OFF)
     Route: 048
     Dates: start: 20181207
  2. SUTENT [Suspect]
     Active Substance: SUNITINIB MALATE
     Dosage: 37.5 MG, CYCLIC (ONCE DAILY 2 WEEK ON, 1 WEEK OFF)
     Route: 048
     Dates: start: 20190909, end: 20210501
  3. CYANOCOBALAMIN\PYRIDOXINE\RIBOFLAVIN\THIAMINE [Concomitant]
     Active Substance: CYANOCOBALAMIN\PYRIDOXINE\RIBOFLAVIN\THIAMINE
     Dosage: UNK, 1X/DAY, FOR 3 MONTHS
     Route: 048
  4. CALCIROL [COLECALCIFEROL] [Concomitant]
     Dosage: 60000 IU, WEEKLY, FOR 18 WEEK WITH MILK OR CURD
  5. PREGABALINA GENERIS [Concomitant]
     Dosage: 75 MG, 2X/DAY
     Route: 048

REACTIONS (6)
  - Death [Fatal]
  - Neoplasm progression [Unknown]
  - Palmar-plantar erythrodysaesthesia syndrome [Unknown]
  - Stomatitis [Unknown]
  - Abdominal pain [Unknown]
  - Abdominal pain upper [Unknown]
